FAERS Safety Report 21283576 (Version 1)
Quarter: 2022Q3

REPORT INFORMATION
  Report Type: Report from Study
  Country: US (occurrence: US)
  Receive Date: 20220901
  Receipt Date: 20220901
  Transmission Date: 20221026
  Serious: No
  Sender: FDA-Public Use
  Company Number: US-NOVARTISTESTPH-NVSC2022US196541

PATIENT
  Age: 26 Year
  Sex: Male

DRUGS (1)
  1. COSENTYX [Suspect]
     Active Substance: SECUKINUMAB
     Indication: Hidradenitis
     Dosage: 150 MG, QMO
     Route: 058
     Dates: start: 20220402, end: 20220830

REACTIONS (4)
  - Injection site erythema [Unknown]
  - Injection site rash [Unknown]
  - Injection site swelling [Unknown]
  - Pain [Unknown]

NARRATIVE: CASE EVENT DATE: 20220718
